FAERS Safety Report 21670858 (Version 1)
Quarter: 2022Q4

REPORT INFORMATION
  Report Type: Spontaneous
  Country: CN (occurrence: CN)
  Receive Date: 20221202
  Receipt Date: 20221202
  Transmission Date: 20230113
  Serious: Yes (Other)
  Sender: FDA-Public Use
  Company Number: None

PATIENT
  Age: 21 Year
  Sex: Male
  Weight: 122 kg

DRUGS (6)
  1. CYCLOPHOSPHAMIDE [Suspect]
     Active Substance: CYCLOPHOSPHAMIDE
     Indication: Acute lymphocytic leukaemia
     Dosage: 3700 MG, QD DILUTED WITH 250 ML OF 0.9% SODIUM CHLORIDE INJECTION
     Route: 041
     Dates: start: 20221020, end: 20221021
  2. SODIUM CHLORIDE [Suspect]
     Active Substance: SODIUM CHLORIDE
     Indication: Medication dilution
     Dosage: 250 ML, QD, USED TO DILUTE 3700 MG OF CYCLOPHOSPHAMIDE INJECTION
     Route: 041
     Dates: start: 20221020, end: 20221021
  3. SODIUM CHLORIDE [Suspect]
     Active Substance: SODIUM CHLORIDE
     Dosage: 250 ML, TWICE IN 2 DAYS, USED TO DILUTE 8200 MG OF CYTARABINE INJECTION, ROUTE- INTRA-PUMP
     Route: 050
     Dates: start: 20221015, end: 20221016
  4. SODIUM CHLORIDE [Suspect]
     Active Substance: SODIUM CHLORIDE
     Dosage: 100 ML, FOUR TIMES A DAY USED TO DILUTE 60 MG OF BUSULFAN INJECTION
     Route: 041
     Dates: start: 20221017, end: 20221020
  5. CYTARABINE [Suspect]
     Active Substance: CYTARABINE
     Indication: Acute lymphocytic leukaemia
     Dosage: 8200 MG, TWICE IN 2 DAYS, DILUTED WITH 250 ML OF 0.9% SODIUM CHLORIDE INJECTION, ROUTE- INTRA PUMP
     Route: 050
     Dates: start: 20221015, end: 20221016
  6. BUSULFAN [Suspect]
     Active Substance: BUSULFAN
     Indication: Acute lymphocytic leukaemia
     Dosage: 60 MG, FOUR TIMES A DAY, DILUTED WITH 100 ML OF 0.9% OF SODIUM CHLORIDE INJECTION
     Route: 041
     Dates: start: 20221017, end: 20221020

REACTIONS (1)
  - Myelosuppression [Recovering/Resolving]

NARRATIVE: CASE EVENT DATE: 20221024
